FAERS Safety Report 9180260 (Version 2)
Quarter: 2017Q3

REPORT INFORMATION
  Report Type: Report from Study
  Country: US (occurrence: US)
  Receive Date: 20130322
  Receipt Date: 20170710
  Transmission Date: 20171128
  Serious: Yes (Hospitalization)
  Sender: FDA-Public Use
  Company Number: US-009507513-1303USA009232

PATIENT
  Age: 4 Year
  Sex: Male
  Weight: 15.4 kg

DRUGS (5)
  1. DEXAMETHASONE. [Concomitant]
     Active Substance: DEXAMETHASONE
     Dosage: UNK UNK, BID
  2. DEXAMETHASONE. [Concomitant]
     Active Substance: DEXAMETHASONE
     Dosage: UNK, TID
     Dates: start: 20130128
  3. DEXAMETHASONE. [Concomitant]
     Active Substance: DEXAMETHASONE
     Dosage: UNK UNK, QD
     Dates: start: 20130124
  4. VORINOSTAT [Suspect]
     Active Substance: VORINOSTAT
     Indication: BRAIN STEM GLIOMA
     Dosage: UNK
     Dates: start: 20130101, end: 20130128
  5. VORINOSTAT [Suspect]
     Active Substance: VORINOSTAT
     Dosage: UNK
     Dates: start: 20130219, end: 20130314

REACTIONS (4)
  - Posterior reversible encephalopathy syndrome [Not Recovered/Not Resolved]
  - Hyponatraemia [Not Recovered/Not Resolved]
  - Lung infection [Recovering/Resolving]
  - Hypoxia [Recovering/Resolving]

NARRATIVE: CASE EVENT DATE: 20130127
